FAERS Safety Report 6178851-5 (Version None)
Quarter: 2009Q2

REPORT INFORMATION
  Report Type: 
  Country: None (occurrence: None)
  Receive Date: 20090504
  Receipt Date: 20090323
  Transmission Date: 20091009
  Serious: No
  Sender: FDA-Public Use
  Company Number: US-ALEXION-A200900232

PATIENT
  Sex: Female

DRUGS (5)
  1. SOLIRIS [Suspect]
     Indication: PAROXYSMAL NOCTURNAL HAEMOGLOBINURIA
     Dosage: 600 MG, QWK X4
     Route: 042
     Dates: start: 20081217
  2. SOLIRIS [Suspect]
     Dosage: 900 MG, UNK
     Dates: start: 20090116
  3. DETROL LA [Concomitant]
     Indication: BLADDER DISORDER
     Dosage: 4 MG, QD
     Route: 048
  4. FOLIC ACID [Concomitant]
     Indication: PAROXYSMAL NOCTURNAL HAEMOGLOBINURIA
     Dosage: UNK
     Route: 048
  5. LEVOTHYROXINE SODIUM [Concomitant]
     Indication: HYPOTHYROIDISM
     Dosage: 75 UG, QD
     Route: 048

REACTIONS (2)
  - BLOOD TEST ABNORMAL [None]
  - DIZZINESS [None]
